FAERS Safety Report 9851068 (Version 3)
Quarter: 2014Q2

REPORT INFORMATION
  Report Type: Report from Study
  Country: TR (occurrence: TR)
  Receive Date: 20140128
  Receipt Date: 20140430
  Transmission Date: 20141212
  Serious: Yes (Hospitalization)
  Sender: FDA-Public Use
  Company Number: TR-ABBVIE-14P-161-1193801-00

PATIENT
  Age: 38 Year
  Sex: Female
  Weight: 84 kg

DRUGS (1)
  1. HUMIRA [Suspect]
     Indication: PSORIATIC ARTHROPATHY
     Route: 058
     Dates: start: 20101108, end: 20140118

REACTIONS (3)
  - Umbilical hernia [Recovered/Resolved]
  - Abdominal pain [Recovered/Resolved]
  - Postoperative wound infection [Not Recovered/Not Resolved]
